FAERS Safety Report 5641113-6 (Version None)
Quarter: 2008Q1

REPORT INFORMATION
  Report Type: 
  Country: None (occurrence: None)
  Receive Date: 20080227
  Receipt Date: 20070122
  Transmission Date: 20080703
  Serious: No
  Sender: FDA-Public Use
  Company Number: A0636259A

PATIENT
  Age: 39 Year
  Sex: Female

DRUGS (1)
  1. NICORETTE (MINT) [Suspect]
     Dates: start: 20070116, end: 20070116

REACTIONS (2)
  - NAUSEA [None]
  - VOMITING [None]
